FAERS Safety Report 5252523-3 (Version None)
Quarter: 2007Q1

REPORT INFORMATION
  Report Type: 
  Country: None (occurrence: None)
  Receive Date: 20070301
  Receipt Date: 20070125
  Transmission Date: 20070707
  Serious: Yes (Life-Threatening, Hospitalization)
  Sender: FDA-Public Use
  Company Number: US-BRISTOL-MYERS SQUIBB COMPANY-13657887

PATIENT
  Age: 53 Year
  Sex: Male

DRUGS (4)
  1. ERBITUX [Suspect]
     Indication: TONSIL CANCER
     Route: 042
  2. BENADRYL [Concomitant]
     Indication: PREMEDICATION
  3. DEXAMETHASONE [Concomitant]
     Indication: PREMEDICATION
  4. ZOFRAN [Concomitant]
     Indication: PREMEDICATION

REACTIONS (2)
  - ANAPHYLACTIC SHOCK [None]
  - RESPIRATORY ARREST [None]
